FAERS Safety Report 23503121 (Version 2)
Quarter: 2024Q4

REPORT INFORMATION
  Report Type: Spontaneous
  Country: US (occurrence: US)
  Receive Date: 20240208
  Receipt Date: 20241004
  Transmission Date: 20250114
  Serious: No
  Sender: INTRA-CELLULAR THERAPIES
  Company Number: US-INTRA-CELLULAR THERAPIES, INC.-2023ICT01726

PATIENT
  Age: 60 Year
  Sex: Female

DRUGS (4)
  1. CAPLYTA [Suspect]
     Active Substance: LUMATEPERONE
     Indication: Bipolar I disorder
     Dosage: 42 MG, 1X/DAY
     Route: 048
     Dates: start: 202311, end: 202311
  2. LAMOTRIGINE [Concomitant]
     Active Substance: LAMOTRIGINE
     Dosage: 150 MG, 1X/DAY
  3. ESTRADIOL [Concomitant]
     Active Substance: ESTRADIOL
     Dosage: 1 MG, 1X/DAY
  4. PROGESTERONE [Concomitant]
     Active Substance: PROGESTERONE
     Dosage: 100 MG, 1X/DAY

REACTIONS (4)
  - Feeling hot [Recovered/Resolved]
  - Dry skin [Recovered/Resolved]
  - Neuralgia [Recovered/Resolved]
  - Skin burning sensation [Recovered/Resolved]

NARRATIVE: CASE EVENT DATE: 20231101
